FAERS Safety Report 5608088-7 (Version None)
Quarter: 2008Q1

REPORT INFORMATION
  Report Type: 
  Country: None (occurrence: None)
  Receive Date: 20080125
  Receipt Date: 20080125
  Transmission Date: 20080703
  Serious: Yes (Other)
  Sender: FDA-Public Use
  Company Number: None

PATIENT
  Age: 29 Year
  Sex: Female
  Weight: 53.5244 kg

DRUGS (1)
  1. ADDERALL 30 [Suspect]
     Indication: ATTENTION DEFICIT/HYPERACTIVITY DISORDER
     Dosage: 90 3 / DAY PO
     Route: 048
     Dates: start: 20080115, end: 20080119

REACTIONS (10)
  - ANXIETY [None]
  - DRUG HYPERSENSITIVITY [None]
  - GASTRIC DISORDER [None]
  - HYPERTENSION [None]
  - MUSCLE RIGIDITY [None]
  - ORTHOSTATIC HYPOTENSION [None]
  - PHARMACEUTICAL PRODUCT COMPLAINT [None]
  - SENSATION OF HEAVINESS [None]
  - TREMOR [None]
  - VOMITING [None]
